FAERS Safety Report 5851655-6 (Version None)
Quarter: 2008Q3

REPORT INFORMATION
  Report Type: 
  Country: None (occurrence: None)
  Receive Date: 20080820
  Receipt Date: 20080811
  Transmission Date: 20090109
  Serious: Yes (Other)
  Sender: FDA-Public Use
  Company Number: BR-ABBOTT-08P-020-0469480-00

PATIENT
  Sex: Female
  Weight: 55 kg

DRUGS (3)
  1. HUMIRA [Suspect]
     Indication: RHEUMATOID ARTHRITIS
     Route: 058
  2. METHOTREXATE SODIUM [Concomitant]
     Indication: RHEUMATOID ARTHRITIS
  3. CORTICOID [Concomitant]
     Indication: RHEUMATOID ARTHRITIS

REACTIONS (5)
  - ASTHENIA [None]
  - HYPOTENSION [None]
  - SKIN REACTION [None]
  - TACHYCARDIA [None]
  - VISION BLURRED [None]
